FAERS Safety Report 8172039-4 (Version None)
Quarter: 2012Q1

REPORT INFORMATION
  Report Type: 
  Country: None (occurrence: None)
  Receive Date: 20120228
  Receipt Date: 20120223
  Transmission Date: 20120608
  Serious: Yes (Life-Threatening, Hospitalization)
  Sender: FDA-Public Use
  Company Number: NL-PFIZER INC-2012049121

PATIENT
  Age: 62 Year
  Sex: Female

DRUGS (2)
  1. LYRICA [Suspect]
     Indication: PHANTOM PAIN
     Dosage: 75 MG, 2X/DAY
     Dates: start: 20120208
  2. ZOPICLONE [Concomitant]
     Dosage: 7.5 MG, 1X/DAY
     Dates: start: 20120207

REACTIONS (2)
  - APATHY [None]
  - LOSS OF CONSCIOUSNESS [None]
